FAERS Safety Report 18139330 (Version 2)
Quarter: 2020Q3

REPORT INFORMATION
  Report Type: Spontaneous
  Country: US (occurrence: US)
  Receive Date: 20200812
  Receipt Date: 20200903
  Transmission Date: 20201103
  Serious: No
  Sender: FDA-Public Use
  Company Number: US-BAUSCH-BL-2020-021652

PATIENT
  Age: 31 Year
  Sex: Male
  Weight: 95.34 kg

DRUGS (2)
  1. BUPROPION. [Suspect]
     Active Substance: BUPROPION
     Indication: DEPRESSION
     Dosage: STARTED ABOUT 6 YEARS PRIOR TO THE INITIAL REPORT, EXTENDED RELEASE (VARIOUS MANUFACTURERS)
     Route: 048
     Dates: start: 201405
  2. LAMICTAL [Concomitant]
     Active Substance: LAMOTRIGINE
     Indication: BIPOLAR DISORDER

REACTIONS (7)
  - Panic attack [Recovered/Resolved]
  - Pollakiuria [Recovered/Resolved]
  - Product substitution issue [Unknown]
  - Blepharospasm [Not Recovered/Not Resolved]
  - Insomnia [Recovered/Resolved]
  - Drug ineffective [Unknown]
  - Muscle twitching [Not Recovered/Not Resolved]

NARRATIVE: CASE EVENT DATE: 201405
